FAERS Safety Report 21834307 (Version 2)
Quarter: 2023Q1

REPORT INFORMATION
  Report Type: Report from Study
  Country: MX (occurrence: MX)
  Receive Date: 20230108
  Receipt Date: 20230220
  Transmission Date: 20230418
  Serious: Yes (Other)
  Sender: FDA-Public Use
  Company Number: MX-002147023-NVSC2022MX235995

PATIENT
  Age: 65 Year
  Sex: Female
  Weight: 54 kg

DRUGS (4)
  1. AFINITOR [Suspect]
     Active Substance: EVEROLIMUS
     Indication: Breast cancer
     Dosage: 5 MG (IN THE MORNING AND AT NIGHT, AND THE NEXT DAY SHE USED TO TAKE ONLY 1 IN THE MORNING)
     Route: 048
     Dates: start: 20221001, end: 20221222
  2. AROMASIN [Concomitant]
     Active Substance: EXEMESTANE
     Indication: Breast cancer
     Dosage: 25 MG, QD
     Route: 048
     Dates: start: 20221001, end: 20221222
  3. XGEVA [Concomitant]
     Active Substance: DENOSUMAB
     Indication: Bone deformity
     Dosage: 120 MG, Q3MO (AROUND 3 YEARS AGO)
     Route: 030
  4. XGEVA [Concomitant]
     Active Substance: DENOSUMAB
     Dosage: 1 DOSAGE FORM, QMO
     Route: 065

REACTIONS (5)
  - Neoplasm progression [Unknown]
  - Pain [Unknown]
  - Aphthous ulcer [Recovered/Resolved]
  - Drug ineffective [Not Recovered/Not Resolved]
  - Off label use [Unknown]

NARRATIVE: CASE EVENT DATE: 20221001
